FAERS Safety Report 9174653 (Version 1)
Quarter: 2013Q1

REPORT INFORMATION
  Report Type: Spontaneous
  Country: US (occurrence: US)
  Receive Date: 20130320
  Receipt Date: 20130320
  Transmission Date: 20140127
  Serious: No
  Sender: FDA-Public Use
  Company Number: US-009507513-1303USA004443

PATIENT
  Sex: Female

DRUGS (18)
  1. DULERA [Suspect]
     Indication: ASTHMA
     Dosage: 200MCG/5 MCG/2 PUFFS TWICE A DAY
     Route: 055
     Dates: start: 201302
  2. LISINOPRIL [Concomitant]
  3. LEVOTHYROXINE SODIUM [Concomitant]
  4. ADVAIR [Concomitant]
  5. BRIMONIDINE TARTRATE [Concomitant]
  6. BUTALBITAL [Concomitant]
  7. ASPIRIN [Concomitant]
  8. PROAIR (ALBUTEROL SULFATE) [Concomitant]
  9. FLUTICASONE PROPIONATE [Concomitant]
  10. LORATADINE [Concomitant]
  11. RIBOFLAVIN [Concomitant]
  12. MAGNESIUM (UNSPECIFIED) [Concomitant]
  13. BENADRYL [Concomitant]
  14. ALOE VERA [Concomitant]
  15. PROBIOTICS (UNSPECIFIED) [Concomitant]
  16. VITAMIN B COMPLEX [Concomitant]
  17. CALCIUM (UNSPECIFIED) [Concomitant]
  18. ASCORBIC ACID [Concomitant]

REACTIONS (2)
  - Oral discomfort [Not Recovered/Not Resolved]
  - Oral mucosal erythema [Not Recovered/Not Resolved]
